FAERS Safety Report 16319070 (Version 1)
Quarter: 2019Q2

REPORT INFORMATION
  Report Type: Spontaneous
  Country: US (occurrence: US)
  Receive Date: 20190515
  Receipt Date: 20190515
  Transmission Date: 20190711
  Serious: Yes (Hospitalization)
  Sender: FDA-Public Use
  Company Number: None

PATIENT
  Age: 11 Year
  Sex: Male

DRUGS (1)
  1. NOVOSEVEN [Suspect]
     Active Substance: COAGULATION FACTOR VIIA RECOMBINANT HUMAN
     Indication: FACTOR IX DEFICIENCY
     Dosage: ?          OTHER FREQUENCY:Q12HOURS, AND PRN;?
     Route: 042
     Dates: start: 20180117

REACTIONS (2)
  - Joint dislocation [None]
  - Haemorrhage [None]

NARRATIVE: CASE EVENT DATE: 20190508
